FAERS Safety Report 26075661 (Version 1)
Quarter: 2025Q4

REPORT INFORMATION
  Report Type: Report from Study
  Country: CA (occurrence: CA)
  Receive Date: 20251121
  Receipt Date: 20251121
  Transmission Date: 20260117
  Serious: Yes (Other)
  Sender: CELLTRION
  Company Number: CA-CELLTRION INC.-2025CA029787

PATIENT

DRUGS (1)
  1. INFLIXIMAB-DYYB [Suspect]
     Active Substance: INFLIXIMAB-DYYB
     Indication: Crohn^s disease
     Dosage: 120MG EVERY 2 WEEKS
     Route: 058
     Dates: start: 20250210

REACTIONS (2)
  - Basal cell carcinoma [Unknown]
  - Symptom recurrence [Unknown]

NARRATIVE: CASE EVENT DATE: 20251101
